FAERS Safety Report 5431537-4 (Version None)
Quarter: 2007Q3

REPORT INFORMATION
  Report Type: 
  Country: None (occurrence: None)
  Receive Date: 20070830
  Receipt Date: 20070822
  Transmission Date: 20080115
  Serious: Yes (Hospitalization)
  Sender: FDA-Public Use
  Company Number: US-JNJFOC-20070804643

PATIENT
  Sex: Male

DRUGS (3)
  1. PREZISTA [Suspect]
     Indication: HIV INFECTION
     Route: 048
  2. RITONAVIR [Suspect]
     Indication: HIV INFECTION
     Route: 048
  3. TRUVADA [Concomitant]
     Indication: HIV INFECTION

REACTIONS (3)
  - BLOOD BILIRUBIN INCREASED [None]
  - NAUSEA [None]
  - PNEUMONIA [None]
